FAERS Safety Report 5102805-0 (Version None)
Quarter: 2006Q3

REPORT INFORMATION
  Report Type: 
  Country: None (occurrence: None)
  Receive Date: 20060907
  Receipt Date: 20060825
  Transmission Date: 20061208
  Serious: Yes (Other)
  Sender: FDA-Public Use
  Company Number: 2006105068

PATIENT

DRUGS (2)
  1. EPIRUBICIN [Suspect]
     Indication: HEPATIC NEOPLASM MALIGNANT
     Dosage: INTRA-ARTERIAL
     Route: 013
     Dates: end: 20060801
  2. LIPIODOL ULTRA-FLUID (ETHIODIZED OIL) [Suspect]
     Indication: HEPATIC NEOPLASM MALIGNANT
     Dosage: INTRA-ARTERIAL
     Route: 013

REACTIONS (2)
  - ALVEOLITIS ALLERGIC [None]
  - INCORRECT ROUTE OF DRUG ADMINISTRATION [None]
